FAERS Safety Report 6101643-X (Version None)
Quarter: 2009Q1

REPORT INFORMATION
  Report Type: 
  Country: None (occurrence: None)
  Receive Date: 20090304
  Receipt Date: 20090302
  Transmission Date: 20090719
  Serious: No
  Sender: FDA-Public Use
  Company Number: US-JNJFOC-20090102915

PATIENT
  Sex: Male
  Weight: 68.04 kg

DRUGS (3)
  1. MOTRIN [Suspect]
  2. MOTRIN [Suspect]
     Indication: MUSCULOSKELETAL PAIN
  3. CELEBREX [Suspect]
     Indication: MUSCULOSKELETAL PAIN

REACTIONS (1)
  - ABDOMINAL PAIN UPPER [None]
